FAERS Safety Report 13780559 (Version 1)
Quarter: 2017Q3

REPORT INFORMATION
  Report Type: Spontaneous
  Country: FR (occurrence: FR)
  Receive Date: 20170724
  Receipt Date: 20170724
  Transmission Date: 20171127
  Serious: Yes (Other)
  Sender: FDA-Public Use
  Company Number: FR-009507513-1707FRA008629

PATIENT
  Age: 40 Year
  Sex: Male

DRUGS (2)
  1. DIPROSTENE [Suspect]
     Active Substance: BETAMETHASONE DIPROPIONATE\BETAMETHASONE SODIUM PHOSPHATE
     Indication: CYST
     Dosage: 4 MG, ONCE
     Route: 014
     Dates: start: 20170413, end: 20170413
  2. XYLOCAINE [Suspect]
     Active Substance: LIDOCAINE HYDROCHLORIDE
     Indication: CYST
     Dosage: 2 ML, ONCE
     Route: 014
     Dates: start: 20170413, end: 20170413

REACTIONS (1)
  - Chest pain [Unknown]

NARRATIVE: CASE EVENT DATE: 20170413
